FAERS Safety Report 26208901 (Version 1)
Quarter: 2025Q4

REPORT INFORMATION
  Report Type: Spontaneous
  Country: US (occurrence: None)
  Receive Date: 20251229
  Receipt Date: 20251229
  Transmission Date: 20260118
  Serious: Yes (Other)
  Sender: FDA-CTU
  Company Number: None

PATIENT
  Age: 58 Year
  Sex: Male
  Weight: 96.75 kg

DRUGS (1)
  1. ULTOMIRIS [Suspect]
     Active Substance: RAVULIZUMAB-CWVZ
     Dosage: 3300 MG EVERY 8 WEEKS INTRAVENOUS
     Route: 042
     Dates: start: 20251215, end: 20251228

REACTIONS (3)
  - Chest pain [None]
  - Blood pressure systolic increased [None]
  - Infusion related reaction [None]

NARRATIVE: CASE EVENT DATE: 20251228
